FAERS Safety Report 5593337-4 (Version None)
Quarter: 2008Q1

REPORT INFORMATION
  Report Type: 
  Country: None (occurrence: None)
  Receive Date: 20080116
  Receipt Date: 20080107
  Transmission Date: 20080703
  Serious: Yes (Hospitalization)
  Sender: FDA-Public Use
  Company Number: FR-ASTRAZENECA-2008CG00025

PATIENT
  Age: 30096 Day
  Sex: Female

DRUGS (10)
  1. PULMICORT [Suspect]
     Route: 055
     Dates: start: 20070724, end: 20070730
  2. TRIATEC [Suspect]
     Route: 048
  3. IZILOX [Suspect]
     Indication: BRONCHITIS
     Route: 048
     Dates: start: 20070724, end: 20070730
  4. CITALOPRAM [Suspect]
     Route: 048
  5. EBIXA [Suspect]
     Route: 048
  6. ADANCOR [Suspect]
     Route: 048
  7. PRAVASTATIN SODIUM [Suspect]
     Route: 048
  8. SECTRAL [Suspect]
     Route: 048
  9. PLAVIX [Suspect]
     Route: 048
  10. CALCIPARINE [Concomitant]
     Route: 058

REACTIONS (2)
  - LOSS OF CONSCIOUSNESS [None]
  - MALAISE [None]
